FAERS Safety Report 22065441 (Version 1)
Quarter: 2023Q1

REPORT INFORMATION
  Report Type: Spontaneous
  Country: HR (occurrence: None)
  Receive Date: 20230306
  Receipt Date: 20230306
  Transmission Date: 20230418
  Serious: Yes (Other)
  Sender: FDA-Public Use
  Company Number: HR-Merck Healthcare KGaA-9386755

PATIENT
  Sex: Female

DRUGS (2)
  1. MAVENCLAD [Suspect]
     Active Substance: CLADRIBINE
     Indication: Relapsing-remitting multiple sclerosis
     Dosage: FIRST TREATMENT CYCLE.
     Dates: start: 201810
  2. MAVENCLAD [Suspect]
     Active Substance: CLADRIBINE
     Dosage: SECOND TREATMENT CYCLE.
     Dates: start: 201910

REACTIONS (4)
  - Quadriparesis [Unknown]
  - Urinary retention [Unknown]
  - Urinary tract infection [Unknown]
  - Psychomotor skills impaired [Unknown]
